FAERS Safety Report 5420266-9 (Version None)
Quarter: 2007Q3

REPORT INFORMATION
  Report Type: 
  Country: None (occurrence: None)
  Receive Date: 20070718
  Receipt Date: 20061106
  Transmission Date: 20080115
  Serious: Yes (Death, Hospitalization, Other)
  Sender: FDA-Public Use
  Company Number: 2006080469

PATIENT
  Age: 83 Year
  Sex: Female

DRUGS (13)
  1. CELEBREX [Suspect]
     Dosage: (200 MG)
  2. MIACALCIN [Concomitant]
  3. AVAPRO [Concomitant]
  4. PREMARIN [Concomitant]
  5. LASIX [Concomitant]
  6. PREVACID [Concomitant]
  7. POTASSIUM CHLORIDE [Concomitant]
  8. ATENOLOL [Concomitant]
  9. PROZAC [Concomitant]
  10. REMERON [Concomitant]
  11. CITRACAL (CALCIUM CITRATE) [Concomitant]
  12. VITAMIN C (VITAMIN C) [Concomitant]
  13. VITAMIN E [Concomitant]

REACTIONS (2)
  - CEREBROVASCULAR ACCIDENT [None]
  - MYOCARDIAL INFARCTION [None]
